FAERS Safety Report 4842240-3 (Version None)
Quarter: 2005Q4

REPORT INFORMATION
  Report Type: 
  Country: None (occurrence: None)
  Receive Date: 20051129
  Receipt Date: 20051116
  Transmission Date: 20060501
  Serious: Yes (Other)
  Sender: FDA-Public Use
  Company Number: 2005157074

PATIENT
  Sex: Male

DRUGS (3)
  1. DETROL LA [Suspect]
     Indication: ILL-DEFINED DISORDER
     Dates: start: 19980101
  2. ALL OTHER NON-THERAPEUTIC PRODUCTS (ALL OTHER NON-THERAPEUTIC PRODUCTS [Suspect]
     Indication: ILL-DEFINED DISORDER
  3. ANTIHYPERTENSIVES (ANTIHYPERTENSIVES) [Concomitant]

REACTIONS (7)
  - BLADDER DISORDER [None]
  - MULTIPLE ALLERGIES [None]
  - SENSORY DISTURBANCE [None]
  - SKIN CANCER [None]
  - SNEEZING [None]
  - UNEVALUABLE EVENT [None]
  - URINARY INCONTINENCE [None]
